FAERS Safety Report 22594087 (Version 1)
Quarter: 2023Q2

REPORT INFORMATION
  Report Type: Report from Study
  Country: US (occurrence: US)
  Receive Date: 20230613
  Receipt Date: 20230613
  Transmission Date: 20230722
  Serious: Yes (Life-Threatening, Hospitalization)
  Sender: FDA-Public Use
  Company Number: US-GLAXOSMITHKLINE-US2023GSK057178

PATIENT

DRUGS (9)
  1. NIRAPARIB [Suspect]
     Active Substance: NIRAPARIB
     Indication: Glioblastoma
     Dosage: 200 MG, QD, PHASE 0
     Dates: start: 20230123, end: 20230126
  2. NIRAPARIB [Suspect]
     Active Substance: NIRAPARIB
     Dosage: 200 MG, QD, EXPANSION PHASE
     Dates: start: 20230213, end: 20230324
  3. FENTANYL + SODIUM CHLORIDE [Concomitant]
     Indication: Sedation
     Dosage: 100 ML
  4. PHENYLEPHRINE + SODIUM CHLORIDE [Concomitant]
     Indication: Hypotension
     Dosage: 250 ML
  5. DEXMEDETOMIDINE + SODIUM CHLORIDE [Concomitant]
     Indication: Sedation
     Dosage: 250 ML
  6. CEFEPIME [Concomitant]
     Active Substance: CEFEPIME HYDROCHLORIDE
     Indication: Sepsis
     Dosage: 2000 MG, BID
  7. ROCURONIUM [Concomitant]
     Active Substance: ROCURONIUM BROMIDE
     Indication: Ventricular dyssynchrony
     Dosage: 50 MG, SINGLE
  8. VANCOMYCIN [Concomitant]
     Active Substance: VANCOMYCIN
     Indication: Sepsis
     Dosage: 1000 MG, BID
  9. VANCOMYCIN [Concomitant]
     Active Substance: VANCOMYCIN
     Dosage: 1500 MG, QD

REACTIONS (2)
  - Pneumonia aspiration [Recovered/Resolved with Sequelae]
  - Neutropenia [Recovered/Resolved]

NARRATIVE: CASE EVENT DATE: 20230330
